FAERS Safety Report 6703047-5 (Version None)
Quarter: 2010Q2

REPORT INFORMATION
  Report Type: 
  Country: None (occurrence: None)
  Receive Date: 20100429
  Receipt Date: 20100423
  Transmission Date: 20101027
  Serious: Yes (Disabling)
  Sender: FDA-Public Use
  Company Number: CA-ALLERGAN-0807034US

PATIENT
  Age: 82 Year
  Sex: Female

DRUGS (9)
  1. BOTOX [Suspect]
     Indication: DYSTONIA
     Dosage: 260 UNITS, SINGLE
     Route: 030
     Dates: start: 19971119, end: 19971119
  2. BOTOX [Suspect]
     Dosage: 350 UNITS, SINGLE
     Route: 030
     Dates: start: 20011026, end: 20011026
  3. BOTOX [Suspect]
     Dosage: 350 UNITS, SINGLE
     Route: 030
     Dates: start: 20020327, end: 20020327
  4. ALPRAZOLAM [Concomitant]
     Dosage: 0.5 MG, QID
     Route: 048
     Dates: start: 19970101
  5. VITAMIN C [Concomitant]
     Dosage: UNK
     Dates: start: 19990101
  6. VITAMIN D [Concomitant]
     Dosage: UNK
     Dates: start: 19990101
  7. VITAMIN E [Concomitant]
     Dosage: UNK
     Dates: start: 19990101
  8. CALCIUM [Concomitant]
     Dosage: UNK
     Dates: start: 19990101
  9. WARFARIN SODIUM [Concomitant]
     Indication: ATRIAL FIBRILLATION

REACTIONS (2)
  - DERMATITIS BULLOUS [None]
  - PEMPHIGOID [None]
